FAERS Safety Report 22034075 (Version 1)
Quarter: 2023Q1

REPORT INFORMATION
  Report Type: Spontaneous
  Country: US (occurrence: None)
  Receive Date: 20230222
  Receipt Date: 20230222
  Transmission Date: 20230418
  Serious: Yes (Other)
  Sender: FDA-Public Use
  Company Number: None

PATIENT
  Age: 68 Year
  Sex: Female
  Weight: 48.6 kg

DRUGS (1)
  1. ALBUTEROL SULFATE [Suspect]
     Active Substance: ALBUTEROL SULFATE
     Indication: Asthma
     Dosage: OTHER QUANTITY : 200 INHALATION(S);?FREQUENCY : AS NEEDED;?
     Route: 055
     Dates: start: 20221223

REACTIONS (4)
  - Device defective [None]
  - Incorrect dose administered by device [None]
  - Frustration tolerance decreased [None]
  - Product design issue [None]

NARRATIVE: CASE EVENT DATE: 20230201
